FAERS Safety Report 8588104-3 (Version None)
Quarter: 2012Q3

REPORT INFORMATION
  Report Type: 
  Country: None (occurrence: None)
  Receive Date: 20120813
  Receipt Date: 20120808
  Transmission Date: 20120928
  Serious: No
  Sender: FDA-Public Use
  Company Number: US-PFIZER INC-2012147853

PATIENT
  Age: 46 Year
  Sex: Female
  Weight: 90.7 kg

DRUGS (1)
  1. ADVIL [Suspect]
     Indication: BACK PAIN
     Dosage: TWO 200 MG, 1X/DAY
     Route: 048
     Dates: start: 20120501, end: 20120601

REACTIONS (1)
  - DRUG INEFFECTIVE [None]
